FAERS Safety Report 16257027 (Version 2)
Quarter: 2019Q2

REPORT INFORMATION
  Report Type: Report from Study
  Country: US (occurrence: US)
  Receive Date: 20190430
  Receipt Date: 20190531
  Transmission Date: 20190711
  Serious: Yes (Hospitalization, Other)
  Sender: FDA-Public Use
  Company Number: US-BIOGEN-2019BI00728930

PATIENT
  Sex: Female

DRUGS (1)
  1. TECFIDERA [Suspect]
     Active Substance: DIMETHYL FUMARATE
     Indication: MULTIPLE SCLEROSIS
     Route: 048
     Dates: start: 2015

REACTIONS (21)
  - Back pain [Unknown]
  - Amnesia [Unknown]
  - Loss of control of legs [Unknown]
  - Nausea [Unknown]
  - Cardiac arrest [Unknown]
  - Nasopharyngitis [Unknown]
  - Adjustment disorder with depressed mood [Unknown]
  - Fall [Recovered/Resolved]
  - Vision blurred [Unknown]
  - Scratch [Unknown]
  - Pneumonia [Unknown]
  - Skin infection [Unknown]
  - Thrombosis [Unknown]
  - Hypoacusis [Unknown]
  - Gastric disorder [Unknown]
  - Gait disturbance [Unknown]
  - Spinal disorder [Unknown]
  - Face injury [Unknown]
  - Memory impairment [Unknown]
  - Multiple sclerosis relapse [Recovered/Resolved]
  - Otitis externa [Unknown]

NARRATIVE: CASE EVENT DATE: 2018
